FAERS Safety Report 14340090 (Version 6)
Quarter: 2018Q2

REPORT INFORMATION
  Report Type: Spontaneous
  Country: RO (occurrence: RO)
  Receive Date: 20171231
  Receipt Date: 20180413
  Transmission Date: 20180711
  Serious: Yes (Other)
  Sender: FDA-Public Use
  Company Number: PHHY2017RO183384

PATIENT
  Age: 73 Year
  Sex: Male

DRUGS (9)
  1. CALCIUM FOLINATE [Suspect]
     Active Substance: LEUCOVORIN CALCIUM
     Indication: COLON CANCER
     Dosage: 400 MG/M2, UNK
     Route: 042
  2. CALCIUM FOLINATE [Suspect]
     Active Substance: LEUCOVORIN CALCIUM
     Dosage: UNK
     Route: 045
  3. AVASTIN [Suspect]
     Active Substance: BEVACIZUMAB
     Indication: COLON CANCER
     Dosage: 5 MG/KG, UNK
     Route: 042
  4. CAPECITABINE. [Suspect]
     Active Substance: CAPECITABINE
     Indication: COLON CANCER
     Dosage: 1000 MG/M2, QD (2000 MG/M2)
     Route: 048
     Dates: start: 20130101, end: 20130601
  5. CAPECITABINE. [Suspect]
     Active Substance: CAPECITABINE
     Dosage: 850 MG/M2, QD (1700 MG/M2)
     Route: 048
     Dates: start: 201612
  6. OXALIPLATIN. [Suspect]
     Active Substance: OXALIPLATIN
     Indication: COLON CANCER
     Dosage: 130 MG/M2, UNK
     Route: 042
     Dates: start: 20130101, end: 20130601
  7. FLUOROURACIL. [Suspect]
     Active Substance: FLUOROURACIL
     Indication: COLON CANCER
     Dosage: UNK
     Route: 042
  8. IRINOTECAN HYDROCHLORIDE. [Suspect]
     Active Substance: IRINOTECAN HYDROCHLORIDE
     Indication: OFF LABEL USE
  9. IRINOTECAN HYDROCHLORIDE. [Suspect]
     Active Substance: IRINOTECAN HYDROCHLORIDE
     Indication: COLON CANCER
     Dosage: 180 MG/M2, UNK (IRINOTECAN HYDROCHLORIDE ENCAPSULATED IN NANOLIPOSOMAL PARTICLES)
     Route: 042

REACTIONS (6)
  - Off label use [Unknown]
  - Palmar-plantar erythrodysaesthesia syndrome [Unknown]
  - Peripheral sensorimotor neuropathy [Unknown]
  - Diarrhoea [Unknown]
  - Vomiting [Unknown]
  - Leukopenia [Recovered/Resolved]
